FAERS Safety Report 20751951 (Version 8)
Quarter: 2024Q3

REPORT INFORMATION
  Report Type: Spontaneous
  Country: FR (occurrence: FR)
  Receive Date: 20220426
  Receipt Date: 20240710
  Transmission Date: 20241017
  Serious: No
  Sender: ROCHE
  Company Number: FR-ROCHE-2914049

PATIENT
  Age: 8 Year
  Sex: Female
  Weight: 39.5 kg

DRUGS (2)
  1. ALECENSA [Suspect]
     Active Substance: ALECTINIB HYDROCHLORIDE
     Indication: Inflammatory myofibroblastic tumour
     Dosage: 3 CAPSULES IN MORNING AND EVENING(TO BE TAKEN WITH OR JUST AFTER FOOD, EVERY 12 HOURS, AT A SET TIME
     Route: 048
  2. ALECENSA [Suspect]
     Active Substance: ALECTINIB HYDROCHLORIDE
     Dosage: 6 CAPSULES IN MORNING AND EVENING (TO BE TAKEN WITH OR JUST AFTER FOOD, EVERY 12 HOURS, AT A SET TIM
     Route: 048

REACTIONS (4)
  - Off label use [Unknown]
  - Hepatic cytolysis [Recovering/Resolving]
  - Asthenia [Unknown]
  - Headache [Unknown]
